FAERS Safety Report 5291032-2 (Version None)
Quarter: 2007Q2

REPORT INFORMATION
  Report Type: 
  Country: None (occurrence: None)
  Receive Date: 20070405
  Receipt Date: 20070405
  Transmission Date: 20071010
  Serious: Yes (Other)
  Sender: FDA-Public Use
  Company Number: None

PATIENT
  Sex: Female
  Weight: 63.5036 kg

DRUGS (1)
  1. ZELNORM [Suspect]
     Indication: IRRITABLE BOWEL SYNDROME
     Dosage: ONE TABLET ONE TO TWICE DAILY PO
     Route: 048
     Dates: start: 20060301, end: 20070331

REACTIONS (11)
  - ASTHENIA [None]
  - CHEST DISCOMFORT [None]
  - CHEST PAIN [None]
  - DISORIENTATION [None]
  - DIZZINESS [None]
  - GAIT DISTURBANCE [None]
  - HEADACHE [None]
  - MIGRAINE [None]
  - NECK PAIN [None]
  - PAIN IN EXTREMITY [None]
  - SPEECH DISORDER [None]
